FAERS Safety Report 8651696 (Version 5)
Quarter: 2012Q4

REPORT INFORMATION
  Report Type: 
  Country: DE (occurrence: DE)
  Receive Date: 20120706
  Receipt Date: 20121108
  Transmission Date: 20130627
  Serious: Yes (Other)
  Sender: FDA-Public Use
  Company Number: PHHY2012DE055423

PATIENT
  Age: 21 Year
  Sex: Female

DRUGS (2)
  1. EXTAVIA [Suspect]
     Indication: MULTIPLE SCLEROSIS
     Dosage: 1 ml, QOD
     Route: 058
     Dates: start: 20120309
  2. EXTAVIA [Suspect]
     Dosage: 1 ml, QOD
     Route: 058

REACTIONS (7)
  - Infection [Recovering/Resolving]
  - Ovarian cyst ruptured [Recovered/Resolved]
  - Abdominal pain [Recovered/Resolved]
  - Weight decreased [Recovering/Resolving]
  - Eating disorder [Recovering/Resolving]
  - Hypovitaminosis [Recovering/Resolving]
  - Anaemia [Recovering/Resolving]
